FAERS Safety Report 5664540-X (Version None)
Quarter: 2008Q1

REPORT INFORMATION
  Report Type: 
  Country: None (occurrence: None)
  Receive Date: 20080314
  Receipt Date: 20080306
  Transmission Date: 20080703
  Serious: Yes (Other)
  Sender: FDA-Public Use
  Company Number: HU-ABBOTT-08P-076-0438697-00

PATIENT
  Sex: Female
  Weight: 65 kg

DRUGS (6)
  1. HUMIRA [Suspect]
     Indication: RHEUMATOID ARTHRITIS
     Route: 058
     Dates: start: 20070801, end: 20071210
  2. METIPREDNISOLON [Concomitant]
     Indication: RHEUMATOID ARTHRITIS
     Route: 048
     Dates: start: 20070801, end: 20080102
  3. METHOTREXATE [Concomitant]
     Indication: RHEUMATOID ARTHRITIS
     Route: 048
     Dates: start: 20070801, end: 20080102
  4. LORNOXICAM [Concomitant]
     Indication: RHEUMATOID ARTHRITIS
     Route: 048
     Dates: start: 20070801, end: 20080102
  5. ESOMEPRAZOLE MAGNESIUM [Concomitant]
     Indication: OESOPHAGEAL ULCER
     Route: 048
     Dates: end: 20080102
  6. ESOMEPRAZOLE MAGNESIUM [Concomitant]
     Indication: GASTROOESOPHAGEAL REFLUX DISEASE

REACTIONS (7)
  - ARTHRALGIA [None]
  - DIARRHOEA [None]
  - EOSINOPHILIA [None]
  - LOCAL SWELLING [None]
  - MYELODYSPLASTIC SYNDROME [None]
  - OESOPHAGEAL ULCER [None]
  - SWELLING FACE [None]
